FAERS Safety Report 4879436-0 (Version None)
Quarter: 2005Q4

REPORT INFORMATION
  Report Type: 
  Country: None (occurrence: None)
  Receive Date: 20051209
  Receipt Date: 20051012
  Transmission Date: 20060501
  Serious: Yes (Death)
  Sender: FDA-Public Use
  Company Number: USA-2005-0021488

PATIENT
  Sex: Female

DRUGS (2)
  1. OXYCONTIN [Suspect]
  2. XANAX [Suspect]

REACTIONS (1)
  - POLYSUBSTANCE ABUSE [None]
